FAERS Safety Report 24660448 (Version 1)
Quarter: 2024Q4

REPORT INFORMATION
  Report Type: Spontaneous
  Country: US (occurrence: US)
  Receive Date: 20241125
  Receipt Date: 20241125
  Transmission Date: 20250114
  Serious: Yes (Hospitalization)
  Sender: BRISTOL-MYERS SQUIBB COMPANY
  Company Number: US-BRISTOL-MYERS SQUIBB COMPANY-2024-181791

PATIENT
  Age: 76 Year
  Sex: Male
  Weight: 95.25 kg

DRUGS (15)
  1. REVLIMID [Suspect]
     Active Substance: LENALIDOMIDE
     Indication: Follicular lymphoma
     Route: 048
     Dates: start: 20240520
  2. REVLIMID [Suspect]
     Active Substance: LENALIDOMIDE
     Route: 048
     Dates: start: 20240620
  3. REVLIMID [Suspect]
     Active Substance: LENALIDOMIDE
     Route: 048
     Dates: start: 20240508
  4. REVLIMID [Suspect]
     Active Substance: LENALIDOMIDE
     Dates: start: 20240723
  5. REVLIMID [Suspect]
     Active Substance: LENALIDOMIDE
     Dates: start: 20240827
  6. REVLIMID [Suspect]
     Active Substance: LENALIDOMIDE
     Dates: start: 20240926
  7. REVLIMID [Suspect]
     Active Substance: LENALIDOMIDE
     Dates: start: 20241021
  8. REVLIMID [Suspect]
     Active Substance: LENALIDOMIDE
     Dates: start: 20240820
  9. LORATADINE [Concomitant]
     Active Substance: LORATADINE
     Dosage: OHM 100 CT
  10. BACLOFEN [Concomitant]
     Active Substance: BACLOFEN
     Route: 048
  11. ASPIRIN [Concomitant]
     Active Substance: ASPIRIN
     Dosage: LODOS
  12. TAMSULOSIN [Concomitant]
     Active Substance: TAMSULOSIN
  13. PAROXETINE HYDROCHLORIDE [Concomitant]
     Active Substance: PAROXETINE HYDROCHLORIDE
  14. ALLOPURINOL [Concomitant]
     Active Substance: ALLOPURINOL
     Route: 048
  15. EZETIMIBE\ROSUVASTATIN [Concomitant]
     Active Substance: EZETIMIBE\ROSUVASTATIN

REACTIONS (2)
  - Superficial vein thrombosis [Recovering/Resolving]
  - White blood cell count decreased [Recovering/Resolving]

NARRATIVE: CASE EVENT DATE: 20240101
